APPROVED DRUG PRODUCT: TENOFOVIR DISOPROXIL FUMARATE
Active Ingredient: TENOFOVIR DISOPROXIL FUMARATE
Strength: 300MG
Dosage Form/Route: TABLET;ORAL
Application: A203232 | Product #001 | TE Code: AB
Applicant: MACLEODS PHARMACEUTICALS LTD
Approved: Jan 26, 2018 | RLD: No | RS: No | Type: RX